FAERS Safety Report 20490123 (Version 3)
Quarter: 2022Q1

REPORT INFORMATION
  Report Type: Report from Study
  Country: US (occurrence: US)
  Receive Date: 20220218
  Receipt Date: 20220312
  Transmission Date: 20220423
  Serious: Yes (Hospitalization, Other)
  Sender: FDA-Public Use
  Company Number: US-TAKEDA-2022TUS008066

PATIENT
  Age: 44 Year
  Sex: Female

DRUGS (16)
  1. TEDUGLUTIDE [Suspect]
     Active Substance: TEDUGLUTIDE
     Indication: Short-bowel syndrome
     Dosage: 2.04 MILLIGRAM, QD
     Route: 058
     Dates: start: 20170516, end: 20170718
  2. TEDUGLUTIDE [Suspect]
     Active Substance: TEDUGLUTIDE
     Indication: Short-bowel syndrome
     Dosage: 2.04 MILLIGRAM, QD
     Route: 058
     Dates: start: 20170516, end: 20170718
  3. TEDUGLUTIDE [Suspect]
     Active Substance: TEDUGLUTIDE
     Indication: Short-bowel syndrome
     Dosage: 2.04 MILLIGRAM, QD
     Route: 058
     Dates: start: 20170516, end: 20170718
  4. TEDUGLUTIDE [Suspect]
     Active Substance: TEDUGLUTIDE
     Indication: Short-bowel syndrome
     Dosage: 2.04 MILLIGRAM, QD
     Route: 058
     Dates: start: 20170516, end: 20170718
  5. TEDUGLUTIDE [Suspect]
     Active Substance: TEDUGLUTIDE
     Dosage: 1.02 MILLIGRAM, 3/WEEK
     Route: 058
     Dates: start: 20170719, end: 20180808
  6. TEDUGLUTIDE [Suspect]
     Active Substance: TEDUGLUTIDE
     Dosage: 1.02 MILLIGRAM, 3/WEEK
     Route: 058
     Dates: start: 20170719, end: 20180808
  7. TEDUGLUTIDE [Suspect]
     Active Substance: TEDUGLUTIDE
     Dosage: 1.02 MILLIGRAM, 3/WEEK
     Route: 058
     Dates: start: 20170719, end: 20180808
  8. TEDUGLUTIDE [Suspect]
     Active Substance: TEDUGLUTIDE
     Dosage: 1.02 MILLIGRAM, 3/WEEK
     Route: 058
     Dates: start: 20170719, end: 20180808
  9. TEDUGLUTIDE [Suspect]
     Active Substance: TEDUGLUTIDE
     Dosage: 0.6 MILLIGRAM, QD
     Route: 058
     Dates: start: 20180808, end: 20181203
  10. TEDUGLUTIDE [Suspect]
     Active Substance: TEDUGLUTIDE
     Dosage: 0.6 MILLIGRAM, QD
     Route: 058
     Dates: start: 20180808, end: 20181203
  11. TEDUGLUTIDE [Suspect]
     Active Substance: TEDUGLUTIDE
     Dosage: 0.6 MILLIGRAM, QD
     Route: 058
     Dates: start: 20180808, end: 20181203
  12. TEDUGLUTIDE [Suspect]
     Active Substance: TEDUGLUTIDE
     Dosage: 0.6 MILLIGRAM, QD
     Route: 058
     Dates: start: 20180808, end: 20181203
  13. METHYLPREDNISOLONE [Concomitant]
     Active Substance: METHYLPREDNISOLONE
     Indication: Synovitis
     Dosage: 20 MILLIGRAM, SINGLE
     Route: 030
     Dates: start: 20210324, end: 20210324
  14. DICLOFENAC [Concomitant]
     Active Substance: DICLOFENAC
     Indication: Synovitis
     Dosage: 2 GRAM, QID
     Route: 061
     Dates: start: 20210324
  15. OXYCODONE [Concomitant]
     Active Substance: OXYCODONE
     Indication: Pain
     Dosage: 1 DOSAGE FORM, QID
     Route: 048
     Dates: start: 20201230
  16. PREDNISONE [Concomitant]
     Active Substance: PREDNISONE
     Indication: Arthralgia
     Dosage: 10 MILLIGRAM, QD
     Route: 048
     Dates: start: 20210202, end: 20210209

REACTIONS (1)
  - Device related bacteraemia [Recovered/Resolved]

NARRATIVE: CASE EVENT DATE: 20201031
